FAERS Safety Report 9303417 (Version 1)
Quarter: 2013Q2

REPORT INFORMATION
  Report Type: Spontaneous
  Country: US (occurrence: US)
  Receive Date: 20130522
  Receipt Date: 20130522
  Transmission Date: 20140414
  Serious: Yes (Other)
  Sender: FDA-Public Use
  Company Number: US-ELI_LILLY_AND_COMPANY-US201305003692

PATIENT
  Sex: Female

DRUGS (16)
  1. HUMALOG 25% LISPRO, 75% NPL [Suspect]
     Indication: DIABETES MELLITUS
     Dosage: UNK
  2. VICTOZA [Concomitant]
     Dosage: UNK, QD
  3. PLAVIX [Concomitant]
     Dosage: UNK, QD
  4. FUROSEMIDE [Concomitant]
     Dosage: UNK, BID
  5. LYRICA [Concomitant]
     Dosage: UNK, BID
  6. SODIUM CARBONATE [Concomitant]
     Dosage: UNK, BID
  7. ZEMPLAR [Concomitant]
     Dosage: UNK, QD
  8. COREG [Concomitant]
     Dosage: UNK, QD
  9. FERROUS SULFATE [Concomitant]
     Dosage: UNK, BID
  10. BAYER ASPIRIN [Concomitant]
     Dosage: UNK, QD
  11. OMEPRAZOLE [Concomitant]
     Dosage: UNK, QD
  12. ATORVASTATIN [Concomitant]
     Dosage: UNK, QD
  13. CYMBALTA [Concomitant]
     Dosage: UNK, BID
  14. METOLAZONE [Concomitant]
     Dosage: UNK, PRN
  15. VITAMIN D [Concomitant]
     Dosage: 50000 DF, QD
  16. CLONIDINE [Concomitant]
     Dosage: UNK, PRN

REACTIONS (4)
  - Renal failure chronic [Not Recovered/Not Resolved]
  - Macular degeneration [Unknown]
  - Cataract [Unknown]
  - Visual acuity reduced [Not Recovered/Not Resolved]
